FAERS Safety Report 9266600 (Version 3)
Quarter: 2013Q3

REPORT INFORMATION
  Report Type: Spontaneous
  Country: PH (occurrence: PH)
  Receive Date: 20130502
  Receipt Date: 20130828
  Transmission Date: 20140515
  Serious: Yes (Death, Other)
  Sender: FDA-Public Use
  Company Number: PHHY2013PH042812

PATIENT
  Sex: Male

DRUGS (3)
  1. GLIVEC [Suspect]
     Dosage: 4 DF, PER DAY
     Route: 048
  2. GLIVEC [Suspect]
     Dosage: 1 DF, PER DAY
     Route: 048
  3. GLIVEC [Suspect]
     Dosage: 400MG, PER DAY
     Route: 048

REACTIONS (12)
  - Viral myocarditis [Fatal]
  - Acute coronary syndrome [Fatal]
  - Pulmonary congestion [Unknown]
  - Troponin I increased [Unknown]
  - Dyspnoea [Unknown]
  - Chest pain [Unknown]
  - Pyrexia [Unknown]
  - Tachyarrhythmia [Unknown]
  - Pancytopenia [Recovered/Resolved]
  - Fatigue [Unknown]
  - Malaise [Unknown]
  - Tachycardia [Unknown]
